FAERS Safety Report 6589540-7 (Version None)
Quarter: 2010Q1

REPORT INFORMATION
  Report Type: 
  Country: None (occurrence: None)
  Receive Date: 20100212
  Receipt Date: 20100126
  Transmission Date: 20100710
  Serious: Yes (Death, Life-Threatening, Hospitalization, Disabling, Other)
  Sender: FDA-Public Use
  Company Number: 2010-00124

PATIENT
  Age: 85 Year
  Sex: Female
  Weight: 53 kg

DRUGS (8)
  1. SIMVASTATIN [Suspect]
     Indication: MYOCARDIAL ISCHAEMIA
     Dosage: 40 MG 1 IN 1 D, ORAL
     Route: 048
     Dates: start: 20080410, end: 20080717
  2. ASPIRIN [Concomitant]
  3. GLYCERYL TRINITRATE [Concomitant]
  4. ISOSORBIDE MONONITRATE [Concomitant]
  5. NICORANDIL [Concomitant]
  6. OLMESARTAN MEDOXOMIL [Concomitant]
  7. PRAVASTATIN [Concomitant]
  8. RAMIPRIL [Concomitant]

REACTIONS (6)
  - AMNESIA [None]
  - BLOOD BILIRUBIN INCREASED [None]
  - CARDIAC FAILURE [None]
  - MOBILITY DECREASED [None]
  - MYOCARDIAL INFARCTION [None]
  - RHABDOMYOLYSIS [None]
